FAERS Safety Report 16060209 (Version 1)
Quarter: 2019Q1

REPORT INFORMATION
  Report Type: Spontaneous
  Country: US (occurrence: US)
  Receive Date: 20190312
  Receipt Date: 20190312
  Transmission Date: 20190418
  Serious: No
  Sender: FDA-Public Use
  Company Number: US-GLAXOSMITHKLINE-US2019042001

PATIENT
  Age: 28 Year
  Sex: Female

DRUGS (1)
  1. PREVACID [Suspect]
     Active Substance: LANSOPRAZOLE
     Indication: GASTROOESOPHAGEAL REFLUX DISEASE
     Dosage: UNK
     Dates: start: 20190220, end: 20190305

REACTIONS (6)
  - Abdominal discomfort [Unknown]
  - Tongue discomfort [Unknown]
  - Pruritus [Unknown]
  - Cough [Unknown]
  - Dyspepsia [Unknown]
  - Drug ineffective [Unknown]
